FAERS Safety Report 23441149 (Version 1)
Quarter: 2024Q1

REPORT INFORMATION
  Report Type: Spontaneous
  Country: GB (occurrence: GB)
  Receive Date: 20240125
  Receipt Date: 20240125
  Transmission Date: 20240410
  Serious: Yes (Hospitalization, Disabling, Other)
  Sender: FDA-Public Use
  Company Number: GB-MHRA-MED-202312251656069680-LBDTZ

PATIENT
  Age: 32 Year
  Sex: Male

DRUGS (1)
  1. SERTRALINE [Suspect]
     Active Substance: SERTRALINE HYDROCHLORIDE
     Indication: Product used for unknown indication
     Dosage: UNK
     Route: 065
     Dates: start: 2018, end: 2023

REACTIONS (5)
  - Apathy [Recovered/Resolved]
  - General physical health deterioration [Unknown]
  - Mental disorder [Unknown]
  - Suicide attempt [Unknown]
  - Medication error [Unknown]

NARRATIVE: CASE EVENT DATE: 20180101
